FAERS Safety Report 24015467 (Version 1)
Quarter: 2024Q2

REPORT INFORMATION
  Report Type: Spontaneous
  Country: US (occurrence: US)
  Receive Date: 20240626
  Receipt Date: 20240626
  Transmission Date: 20240716
  Serious: Yes (Death, Other)
  Sender: FDA-Public Use
  Company Number: US-009507513-2406USA005701

PATIENT
  Age: 80 Year
  Sex: Male

DRUGS (1)
  1. KEYTRUDA [Suspect]
     Active Substance: PEMBROLIZUMAB
     Indication: Lung neoplasm malignant
     Dosage: UNK

REACTIONS (5)
  - Malignant neoplasm progression [Fatal]
  - Chronic myelomonocytic leukaemia [Fatal]
  - Aplastic anaemia [Unknown]
  - Blood test abnormal [Unknown]
  - Heart rate irregular [Unknown]
